FAERS Safety Report 7749756-0 (Version None)
Quarter: 2011Q3

REPORT INFORMATION
  Report Type: 
  Country: None (occurrence: None)
  Receive Date: 20110914
  Receipt Date: 20110905
  Transmission Date: 20111222
  Serious: Yes (Life-Threatening, Hospitalization)
  Sender: FDA-Public Use
  Company Number: IL-ROCHE-800583

PATIENT
  Age: 50 Year
  Sex: Male
  Weight: 75.7 kg

DRUGS (1)
  1. VEMURAFENIB [Suspect]
     Dosage: FORM:PILL
     Route: 048
     Dates: start: 20110711

REACTIONS (1)
  - HEPATITIS [None]
